FAERS Safety Report 6156230-4 (Version None)
Quarter: 2009Q2

REPORT INFORMATION
  Report Type: 
  Country: None (occurrence: None)
  Receive Date: 20090415
  Receipt Date: 20090408
  Transmission Date: 20091009
  Serious: Yes (Hospitalization)
  Sender: FDA-Public Use
  Company Number: GB-BAXTER-2009BH005762

PATIENT
  Age: 82 Year
  Sex: Female

DRUGS (8)
  1. CYCLOPHOSPHAMIDE [Suspect]
     Indication: TEMPORAL ARTERITIS
     Route: 042
  2. CYCLOPHOSPHAMIDE [Suspect]
     Indication: OFF LABEL USE
     Route: 042
  3. MESNA [Suspect]
     Indication: TEMPORAL ARTERITIS
     Route: 065
  4. MESNA [Suspect]
     Indication: OFF LABEL USE
     Route: 065
  5. METHYLPREDNISOLONE 4MG TAB [Suspect]
     Indication: TEMPORAL ARTERITIS
     Route: 042
  6. METHYLPREDNISOLONE 4MG TAB [Suspect]
     Indication: OFF LABEL USE
     Route: 042
  7. RITUXIMAB [Suspect]
     Indication: TEMPORAL ARTERITIS
     Route: 042
  8. RITUXIMAB [Suspect]
     Indication: OFF LABEL USE
     Route: 042

REACTIONS (2)
  - LUNG CONSOLIDATION [None]
  - RESPIRATORY FAILURE [None]
